FAERS Safety Report 16693124 (Version 1)
Quarter: 2019Q4

REPORT INFORMATION
  Report Type: Spontaneous
  Country: US (occurrence: US)
  Receive Date: 20190811
  Receipt Date: 20190811
  Transmission Date: 20200122
  Serious: Yes (Disabling, Other)
  Sender: FDA-Public Use
  Company Number: None

PATIENT
  Age: 51 Year
  Sex: Male
  Weight: 107.55 kg

DRUGS (7)
  1. ADALIMUMAB CITRATE FREE [Concomitant]
  2. BALSALAZIDE [Concomitant]
     Active Substance: BALSALAZIDE
  3. CLOTRIMAZOLE(LOTRIMIN) [Concomitant]
  4. PREDNISONE. [Concomitant]
     Active Substance: PREDNISONE
  5. PATADAY [Concomitant]
     Active Substance: OLOPATADINE HYDROCHLORIDE
  6. PIMECROLIMUS(ELEIDEL) 15 CREAM [Concomitant]
  7. COSENTYX [Suspect]
     Active Substance: SECUKINUMAB
     Indication: ANKYLOSING SPONDYLITIS
     Dates: start: 20180701, end: 20190503

REACTIONS (3)
  - Colitis ulcerative [None]
  - Chills [None]
  - Enteritis [None]

NARRATIVE: CASE EVENT DATE: 20190403
